FAERS Safety Report 13793297 (Version 1)
Quarter: 2017Q3

REPORT INFORMATION
  Report Type: Spontaneous
  Country: US (occurrence: US)
  Receive Date: 20170726
  Receipt Date: 20170726
  Transmission Date: 20171127
  Serious: No
  Sender: FDA-Public Use
  Company Number: US-MYLANLABS-2016M1028982

PATIENT

DRUGS (4)
  1. CLONIDINE HYDROCHLORIDE TABLETS, USP [Suspect]
     Active Substance: CLONIDINE HYDROCHLORIDE
     Indication: IMPULSE-CONTROL DISORDER
     Dosage: 0.5 MG, TID
     Route: 048
     Dates: start: 201605, end: 20160703
  2. CLONIDINE HYDROCHLORIDE TABLETS, USP [Suspect]
     Active Substance: CLONIDINE HYDROCHLORIDE
     Indication: OFF LABEL USE
  3. CLONIDINE HYDROCHLORIDE TABLETS, USP [Suspect]
     Active Substance: CLONIDINE HYDROCHLORIDE
     Indication: IMPULSE-CONTROL DISORDER
     Dosage: 0.5 MG, TID
     Route: 048
     Dates: start: 201605, end: 20160703
  4. CLONIDINE HYDROCHLORIDE TABLETS, USP [Suspect]
     Active Substance: CLONIDINE HYDROCHLORIDE
     Indication: OFF LABEL USE

REACTIONS (2)
  - Drug ineffective for unapproved indication [Recovered/Resolved]
  - Nonspecific reaction [Recovered/Resolved]

NARRATIVE: CASE EVENT DATE: 201605
